FAERS Safety Report 6859354-9 (Version None)
Quarter: 2010Q3

REPORT INFORMATION
  Report Type: 
  Country: None (occurrence: None)
  Receive Date: 20100719
  Receipt Date: 20080516
  Transmission Date: 20110219
  Serious: No
  Sender: FDA-Public Use
  Company Number: US-PFIZER INC-2008018746

PATIENT
  Sex: Female
  Weight: 70.31 kg

DRUGS (2)
  1. CHANTIX [Suspect]
     Indication: SMOKING CESSATION THERAPY
     Dates: start: 20080201, end: 20080201
  2. PAXIL [Concomitant]
     Indication: DEPRESSION
     Dates: start: 20061001

REACTIONS (1)
  - FEELING ABNORMAL [None]
